FAERS Safety Report 10732564 (Version 3)
Quarter: 2015Q1

REPORT INFORMATION
  Report Type: Spontaneous
  Country: JP (occurrence: JP)
  Receive Date: 20150123
  Receipt Date: 20150316
  Transmission Date: 20150721
  Serious: Yes (Other)
  Sender: FDA-Public Use
  Company Number: JP-009507513-1501JPN000048

PATIENT
  Age: 47 Year
  Sex: Female

DRUGS (4)
  1. LUNESTA [Concomitant]
     Active Substance: ESZOPICLONE
     Indication: INSOMNIA
     Dosage: 3 MG, 1 DAY INTERVAL
     Route: 065
     Dates: start: 20140820, end: 20150107
  2. BELSOMRA [Suspect]
     Active Substance: SUVOREXANT
     Indication: INSOMNIA
     Dosage: 20 MG, ONCE A DAY
     Route: 048
     Dates: start: 20141126, end: 20141210
  3. LEXAPRO [Concomitant]
     Active Substance: ESCITALOPRAM OXALATE
     Indication: DEPRESSION
     Dosage: 20 MG, 1 DAY INTERVAL
     Route: 065
     Dates: start: 20141022
  4. TRAZODONE HYDROCHLORIDE. [Concomitant]
     Active Substance: TRAZODONE HYDROCHLORIDE
     Dosage: 50 MG, 1 DAY INTERVAL
     Route: 065
     Dates: start: 20140423

REACTIONS (1)
  - Sedation [Recovering/Resolving]

NARRATIVE: CASE EVENT DATE: 20141210
